FAERS Safety Report 18304256 (Version 2)
Quarter: 2020Q4

REPORT INFORMATION
  Report Type: Spontaneous
  Country: JP (occurrence: JP)
  Receive Date: 20200923
  Receipt Date: 20201101
  Transmission Date: 20210113
  Serious: Yes (Death, Life-Threatening, Hospitalization, Other)
  Sender: FDA-Public Use
  Company Number: JP-009507513-1912JPN001574J

PATIENT
  Age: 76 Year
  Sex: Male
  Weight: 57 kg

DRUGS (1)
  1. KEYTRUDA [Suspect]
     Active Substance: PEMBROLIZUMAB
     Indication: LUNG SQUAMOUS CELL CARCINOMA STAGE IV
     Dosage: 200 MILLIGRAM, Q3W
     Route: 041
     Dates: start: 20190327, end: 20191121

REACTIONS (5)
  - Pneumonia [Recovered/Resolved]
  - Pneumonia aspiration [Fatal]
  - Cervical vertebral fracture [Unknown]
  - Plasma cell myeloma [Recovered/Resolved with Sequelae]
  - Malignant neoplasm progression [Unknown]

NARRATIVE: CASE EVENT DATE: 20190530
